FAERS Safety Report 6369253-7 (Version None)
Quarter: 2009Q3

REPORT INFORMATION
  Report Type: 
  Country: None (occurrence: None)
  Receive Date: 20090916
  Receipt Date: 20090908
  Transmission Date: 20100115
  Serious: Yes (Life-Threatening, Hospitalization)
  Sender: FDA-Public Use
  Company Number: ADR20372009

PATIENT
  Age: 61 Year
  Sex: Male

DRUGS (2)
  1. SERTRALINE HCL [Suspect]
     Dosage: 3.1G ORAL
     Route: 048
  2. QUETIAPINE FUMARATE [Suspect]
     Dosage: 4.3 G ORAL
     Route: 048

REACTIONS (8)
  - BLOOD GLUCOSE INCREASED [None]
  - BLOOD PRESSURE SYSTOLIC DECREASED [None]
  - BODY TEMPERATURE DECREASED [None]
  - COMA [None]
  - HYPOTENSION [None]
  - HYPOTHERMIA [None]
  - OVERDOSE [None]
  - SUICIDE ATTEMPT [None]
